FAERS Safety Report 8087442-0 (Version None)
Quarter: 2012Q1

REPORT INFORMATION
  Report Type: 
  Country: None (occurrence: None)
  Receive Date: 20120128
  Receipt Date: 20110524
  Transmission Date: 20120608
  Serious: No
  Sender: FDA-Public Use
  Company Number: US-ABBOTT-11P-163-0728096-00

PATIENT
  Age: 46 Year
  Sex: Female

DRUGS (14)
  1. TOPROL-XL [Concomitant]
     Indication: CARDIAC DISORDER
  2. EYE DROPS [Concomitant]
     Indication: CORNEAL DEGENERATION
  3. CARAFATE [Concomitant]
     Indication: ULCER
     Dosage: 1 GRAM, DAILY
  4. EYE DROPS [Concomitant]
     Indication: FUCHS' SYNDROME
     Dosage: DAILY
  5. BENADRYL [Concomitant]
     Indication: HYPERSENSITIVITY
  6. LEVOTHYROXINE SODIUM [Concomitant]
     Indication: HYPOTHYROIDISM
     Dosage: 112 MICROGRAM, DAILY
  7. TOPROL-XL [Concomitant]
     Indication: CHEST PAIN
     Dosage: 12.5 MILLIGRAM, DAILY
  8. WARFARIN SODIUM [Concomitant]
     Indication: ANTICOAGULANT THERAPY
     Dosage: 7.5MG M/W/F, 5MG T/TH/SAT
  9. HUMIRA [Suspect]
     Indication: RHEUMATOID ARTHRITIS
     Dates: start: 20110101
  10. OMEPRAZOLE [Concomitant]
     Indication: ULCER
     Dosage: 40 MILLIGRAM, DAILY
  11. TOPAMAX [Concomitant]
     Indication: BACK PAIN
     Dosage: 200 MILLIGRAM, DAILY
  12. CRESTOR [Concomitant]
     Indication: BLOOD CHOLESTEROL INCREASED
     Dosage: 10 MILLIGRAM, DAILY
  13. LOVAZA [Concomitant]
     Indication: PROPHYLAXIS
     Dosage: 2000 MILLIGRAM, DAILY
  14. METHOTREXATE [Concomitant]
     Indication: RHEUMATOID ARTHRITIS
     Dosage: 5 MILLIGRAM, DAILY

REACTIONS (3)
  - HYPERSENSITIVITY [None]
  - RASH PUSTULAR [None]
  - SKIN INDURATION [None]
